FAERS Safety Report 7702448-6 (Version None)
Quarter: 2011Q3

REPORT INFORMATION
  Report Type: 
  Country: None (occurrence: None)
  Receive Date: 20110823
  Receipt Date: 20110816
  Transmission Date: 20111222
  Serious: Yes (Other)
  Sender: FDA-Public Use
  Company Number: GB-BRISTOL-MYERS SQUIBB COMPANY-15972375

PATIENT
  Age: 71 Year
  Sex: Male

DRUGS (4)
  1. RAMIPRIL [Suspect]
     Indication: PROPHYLAXIS
  2. SIMAVASTATIN [Suspect]
     Indication: HYPERCHOLESTEROLAEMIA
  3. METFORMIN HCL [Suspect]
     Indication: TYPE 2 DIABETES MELLITUS
  4. ACETYLSALICYLIC ACID [Suspect]
     Indication: PROPHYLAXIS

REACTIONS (1)
  - NAEVUS FLAMMEUS [None]
